FAERS Safety Report 24765844 (Version 1)
Quarter: 2024Q4

REPORT INFORMATION
  Report Type: Spontaneous
  Country: US (occurrence: US)
  Receive Date: 20241223
  Receipt Date: 20241223
  Transmission Date: 20250115
  Serious: No
  Sender: IPSEN BIOPHARMACEUTICALS, INC.
  Company Number: US-IPSEN Group, Research and Development-2024-02756

PATIENT
  Age: 35 Year
  Sex: Female

DRUGS (3)
  1. DYSPORT [Suspect]
     Active Substance: ABOBOTULINUMTOXINA
     Indication: Skin wrinkling
     Dosage: 18 UNITS PER SIDE OF CROW^S FEET
     Route: 065
     Dates: start: 20240112, end: 20240112
  2. POLYLACTIDE, L- [Suspect]
     Active Substance: POLYLACTIDE, L-
     Indication: Skin cosmetic procedure
     Dosage: 1 VIAL, APPROXIMATELY 8MLS PER SIDE
     Route: 058
     Dates: start: 20231122, end: 20231122
  3. POLYLACTIDE, L- [Suspect]
     Active Substance: POLYLACTIDE, L-
     Dosage: 1 VIAL, APPROXIMATELY 8MLS PER SIDE
     Route: 058
     Dates: start: 20231219, end: 20231219

REACTIONS (12)
  - Granuloma [Unknown]
  - Inflammation [Recovering/Resolving]
  - Poor quality sleep [Recovering/Resolving]
  - Heart rate increased [Recovering/Resolving]
  - Pruritus [Recovering/Resolving]
  - Acne [Recovering/Resolving]
  - Paraesthesia [Recovering/Resolving]
  - Skin burning sensation [Recovering/Resolving]
  - Palpitations [Recovering/Resolving]
  - Hot flush [Recovering/Resolving]
  - Feeling hot [Recovering/Resolving]
  - Swelling face [Recovering/Resolving]

NARRATIVE: CASE EVENT DATE: 20240202
